FAERS Safety Report 9799569 (Version 1)
Quarter: 2014Q1

REPORT INFORMATION
  Report Type: Spontaneous
  Country: US (occurrence: US)
  Receive Date: 20140106
  Receipt Date: 20140106
  Transmission Date: 20141002
  Serious: No
  Sender: FDA-Public Use
  Company Number: US-GILEAD-2010-0030256

PATIENT
  Sex: Female
  Weight: 57.61 kg

DRUGS (11)
  1. LETAIRIS [Suspect]
     Indication: PULMONARY ARTERIAL HYPERTENSION
     Route: 048
     Dates: start: 20100415
  2. CALTRATE [Concomitant]
  3. ULTRAM [Concomitant]
  4. SYNTHROID [Concomitant]
  5. PREDNISONE [Concomitant]
  6. NORVASC [Concomitant]
  7. ESTRADERM [Concomitant]
  8. QUESTRAN [Concomitant]
  9. NEXIUM [Concomitant]
  10. VITAMIN D [Concomitant]
  11. BENICAR [Concomitant]

REACTIONS (1)
  - Adverse drug reaction [Unknown]
